FAERS Safety Report 11541780 (Version 1)
Quarter: 2015Q3

REPORT INFORMATION
  Report Type: Spontaneous
  Country: US (occurrence: US)
  Receive Date: 20150923
  Receipt Date: 20150923
  Transmission Date: 20151125
  Serious: Yes (Life-Threatening, Other)
  Sender: FDA-Public Use
  Company Number: US-ELI_LILLY_AND_COMPANY-US201509005728

PATIENT
  Age: 32 Year
  Sex: Male

DRUGS (3)
  1. NALOXONE [Concomitant]
     Active Substance: NALOXONE
     Indication: PRODUCT USED FOR UNKNOWN INDICATION
     Dosage: 0.2 MG, SINGLE
     Route: 042
  2. OLANZAPINE. [Suspect]
     Active Substance: OLANZAPINE
     Indication: AGITATION
     Dosage: 10 MG, SINGLE
     Route: 030
  3. HYDROCODONE BITARTRATE AND ACETAMINOPHEN [Concomitant]
     Active Substance: ACETAMINOPHEN\HYDROCODONE BITARTRATE
     Indication: PRODUCT USED FOR UNKNOWN INDICATION
     Dosage: 12 DF, SINGLE
     Route: 048

REACTIONS (5)
  - Bradycardia [Recovered/Resolved]
  - Spasmodic dysphonia [Recovered/Resolved]
  - Unresponsive to stimuli [Recovered/Resolved]
  - Chest expansion decreased [Recovered/Resolved]
  - Hypoxia [Recovered/Resolved]
